FAERS Safety Report 20425924 (Version 5)
Quarter: 2022Q4

REPORT INFORMATION
  Report Type: Report from Study
  Country: US (occurrence: US)
  Receive Date: 20220204
  Receipt Date: 20221021
  Transmission Date: 20230113
  Serious: Yes (Other)
  Sender: FDA-Public Use
  Company Number: US-EXELIXIS-CABO-21040742

PATIENT
  Sex: Male

DRUGS (8)
  1. CABOMETYX [Suspect]
     Active Substance: CABOZANTINIB S-MALATE
     Indication: Renal cancer
     Dosage: 20 MG, QD
     Route: 048
     Dates: start: 20210205
  2. CABOMETYX [Suspect]
     Active Substance: CABOZANTINIB S-MALATE
     Dosage: 40 MG, QD
     Route: 048
  3. CABOMETYX [Suspect]
     Active Substance: CABOZANTINIB S-MALATE
     Dosage: 40 MG
     Route: 048
  4. CABOMETYX [Suspect]
     Active Substance: CABOZANTINIB S-MALATE
     Dosage: 40 MG, QOD
     Route: 048
  5. CABOMETYX [Suspect]
     Active Substance: CABOZANTINIB S-MALATE
     Dosage: 40 MG, QD
     Route: 048
  6. NIVOLUMAB [Concomitant]
     Active Substance: NIVOLUMAB
  7. ALLOPURINOL [Concomitant]
     Active Substance: ALLOPURINOL
  8. IPILIMUMAB [Concomitant]
     Active Substance: IPILIMUMAB

REACTIONS (8)
  - Spinal compression fracture [Unknown]
  - Diarrhoea [Recovered/Resolved]
  - Blood calcium increased [Unknown]
  - Herpes zoster [Unknown]
  - Pruritus [Unknown]
  - Blood potassium increased [Unknown]
  - Cancer pain [Unknown]
  - Inappropriate schedule of product administration [Unknown]
